FAERS Safety Report 16938266 (Version 1)
Quarter: 2019Q4

REPORT INFORMATION
  Report Type: Report from Study
  Country: IT (occurrence: IT)
  Receive Date: 20191019
  Receipt Date: 20191019
  Transmission Date: 20200122
  Serious: Yes (Other)
  Sender: FDA-Public Use
  Company Number: IT-ACCORD-158391

PATIENT
  Age: 71 Year
  Sex: Female

DRUGS (5)
  1. LOSARTAN. [Suspect]
     Active Substance: LOSARTAN
     Indication: HYPERTENSION
     Dosage: THERAPY END DATE- 05-AUG-2019?0.5 DOSE UNIT IN THE MORNING + IN THE EVENING
     Route: 048
     Dates: start: 20180805
  2. PROPAFENONE. [Concomitant]
     Active Substance: PROPAFENONE
  3. CARDIRENE [Concomitant]
     Active Substance: ASPIRIN DL-LYSINE
     Dosage: STRENGTH: 160 MG
  4. HYDROCHLOROTHIAZIDE. [Suspect]
     Active Substance: HYDROCHLOROTHIAZIDE
     Indication: HYPERTENSION
     Dosage: THERAPY END DATE- 05-AUG-2019
     Route: 048
     Dates: start: 20180805
  5. RYTMONORM [Concomitant]
     Active Substance: PROPAFENONE

REACTIONS (2)
  - Hypertensive crisis [Recovering/Resolving]
  - Drug ineffective [Unknown]

NARRATIVE: CASE EVENT DATE: 20190805
